FAERS Safety Report 15378477 (Version 3)
Quarter: 2018Q3

REPORT INFORMATION
  Report Type: Spontaneous
  Country: BR (occurrence: BR)
  Receive Date: 20180913
  Receipt Date: 20180915
  Transmission Date: 20181010
  Serious: No
  Sender: FDA-Public Use
  Company Number: BR-B.I. PHARMACEUTICALS,INC./RIDGEFIELD-2018-BI-045185

PATIENT
  Age: 63 Year
  Sex: Female
  Weight: 88 kg

DRUGS (5)
  1. NAPRIX D [Concomitant]
     Indication: HYPERTENSION
     Route: 065
     Dates: start: 2017
  2. RIVOTRIL [Concomitant]
     Active Substance: CLONAZEPAM
     Indication: ASTHMA
     Route: 065
  3. LUGANO [Concomitant]
     Indication: ASTHMA
     Route: 065
     Dates: start: 2018
  4. SPIRIVA RESPIMAT [Suspect]
     Active Substance: TIOTROPIUM BROMIDE
     Indication: ASTHMA
     Route: 055
     Dates: start: 2017
  5. ECASIL [Concomitant]
     Active Substance: ASPIRIN
     Indication: ANTICOAGULANT THERAPY
     Route: 065
     Dates: start: 2017

REACTIONS (6)
  - Cough [Unknown]
  - Product quality issue [Unknown]
  - Choking [Recovered/Resolved]
  - Dyspnoea [Not Recovered/Not Resolved]
  - Dizziness [Unknown]
  - Cough [Recovered/Resolved]

NARRATIVE: CASE EVENT DATE: 20180911
